FAERS Safety Report 19379145 (Version 2)
Quarter: 2022Q2

REPORT INFORMATION
  Report Type: Report from Study
  Country: US (occurrence: US)
  Receive Date: 20210607
  Receipt Date: 20220513
  Transmission Date: 20220721
  Serious: Yes (Other)
  Sender: FDA-Public Use
  Company Number: US-BIOGEN-2021BI00988643

PATIENT
  Sex: Female

DRUGS (4)
  1. TECFIDERA [Suspect]
     Active Substance: DIMETHYL FUMARATE
     Indication: Multiple sclerosis
     Route: 065
     Dates: start: 20130423, end: 20130809
  2. TECFIDERA [Suspect]
     Active Substance: DIMETHYL FUMARATE
     Route: 065
     Dates: start: 20130809, end: 20130809
  3. TECFIDERA [Suspect]
     Active Substance: DIMETHYL FUMARATE
     Route: 065
  4. TECFIDERA [Suspect]
     Active Substance: DIMETHYL FUMARATE
     Indication: Multiple sclerosis
     Route: 065

REACTIONS (10)
  - Colitis ulcerative [Unknown]
  - Insomnia [Unknown]
  - Autoimmune disorder [Unknown]
  - Muscle tightness [Unknown]
  - Multiple sclerosis [Unknown]
  - Fibromyalgia [Unknown]
  - Herpes zoster reactivation [Unknown]
  - Immune system disorder [Unknown]
  - Visual impairment [Unknown]
  - Burning sensation [Unknown]
